FAERS Safety Report 5214788-3 (Version None)
Quarter: 2007Q1

REPORT INFORMATION
  Report Type: 
  Country: None (occurrence: None)
  Receive Date: 20070122
  Receipt Date: 20070122
  Transmission Date: 20070707
  Serious: No
  Sender: FDA-Public Use
  Company Number: None

PATIENT
  Age: 29 Year
  Sex: Male
  Weight: 96.1626 kg

DRUGS (2)
  1. ABILIFY [Suspect]
     Indication: PSYCHOTIC DISORDER
     Dosage: 5 MG ONCE DAILY
     Dates: start: 20070101
  2. GABITRIL [Suspect]
     Indication: EPILEPSY
     Dosage: 20 MG TWICE DAILY; SPRING 2002
     Dates: start: 20020101

REACTIONS (4)
  - DRUG INTERACTION [None]
  - MUSCLE CONTRACTURE [None]
  - PAIN [None]
  - TESTICULAR DISORDER [None]
